FAERS Safety Report 6900031-3 (Version None)
Quarter: 2010Q3

REPORT INFORMATION
  Report Type: 
  Country: None (occurrence: None)
  Receive Date: 20100708
  Receipt Date: 20100407
  Transmission Date: 20110219
  Serious: Yes (Other)
  Sender: FDA-Public Use
  Company Number: 2010045742

PATIENT
  Age: 31 Year
  Sex: Female
  Weight: 90 kg

DRUGS (6)
  1. CHANTIX [Suspect]
     Indication: SMOKING CESSATION THERAPY
     Dosage: 0.5 MG, 1X/DAY, ORAL
     Route: 048
     Dates: start: 20100325, end: 20100301
  2. ZOLOFT [Concomitant]
  3. STRATTERA [Concomitant]
  4. XANAX [Concomitant]
  5. HYDROCODONE BITARTRATE [Concomitant]
  6. TINIDAZOLE (TINIDAZOLE) [Concomitant]

REACTIONS (6)
  - ABNORMAL DREAMS [None]
  - HERPES SIMPLEX SEROLOGY POSITIVE [None]
  - INSOMNIA [None]
  - MOUTH ULCERATION [None]
  - STRESS [None]
  - SWOLLEN TONGUE [None]
